FAERS Safety Report 11925420 (Version 1)
Quarter: 2016Q1

REPORT INFORMATION
  Report Type: Report from Study
  Country: US (occurrence: US)
  Receive Date: 20160118
  Receipt Date: 20160118
  Transmission Date: 20160526
  Serious: Yes (Other)
  Sender: FDA-Public Use
  Company Number: US-BAXALTA-2016BLT000206

PATIENT
  Age: 66 Year
  Sex: Female

DRUGS (1)
  1. GAMMAGARD [Suspect]
     Active Substance: HUMAN IMMUNOGLOBULIN G
     Indication: PRIMARY IMMUNODEFICIENCY SYNDROME
     Dosage: UNK
     Route: 042

REACTIONS (4)
  - Fatigue [Recovering/Resolving]
  - Headache [Unknown]
  - Upper respiratory tract infection [Recovered/Resolved]
  - Temporomandibular joint syndrome [Unknown]

NARRATIVE: CASE EVENT DATE: 201510
